FAERS Safety Report 10381527 (Version 1)
Quarter: 2014Q1

REPORT INFORMATION
  Report Type: Spontaneous
  Country: US (occurrence: None)
  Receive Date: 20140306
  Receipt Date: 20140306
  Transmission Date: 20141002
  Serious: Yes (Hospitalization)
  Sender: FDA-Public Use
  Company Number: 163-21880-13023601

PATIENT
  Age: 59 Year
  Sex: Male

DRUGS (9)
  1. REVLIMID (LENALIDOMIDE) (25 MILLIGRAM, CAPSULES) [Suspect]
     Indication: PLASMA CELL MYELOMA
     Dosage: 21 IN 28 D
     Route: 048
     Dates: start: 20111102, end: 20130124
  2. HYDROCODONE/ ACETAMINOPHEN (REMEDEINE) [Concomitant]
  3. OXYCODONE [Concomitant]
  4. RESTORIL (TEMAZEPAM) [Concomitant]
  5. VALTREX (VALACICLOVIR HYDROCHLORIDE) [Concomitant]
  6. XANAX (ALPRAZOLAM) [Concomitant]
  7. PROCRIT (ERYTHROPOIETIN) [Concomitant]
  8. ZITHROMAX (AZITHROMYCIN) [Concomitant]
  9. VELCADE (BORTEZOMIB) [Concomitant]

REACTIONS (1)
  - Treatment failure [None]
